FAERS Safety Report 9893686 (Version 3)
Quarter: 2014Q1

REPORT INFORMATION
  Report Type: Spontaneous
  Country: IT (occurrence: IT)
  Receive Date: 20140213
  Receipt Date: 20140228
  Transmission Date: 20141002
  Serious: Yes (Other)
  Sender: FDA-Public Use
  Company Number: IT-PFIZER INC-2014040856

PATIENT
  Age: 14 Year
  Sex: Female

DRUGS (4)
  1. ZOLOFT [Suspect]
     Dosage: PRESCRIBED ON PACKET
     Dates: start: 201306
  2. ZOLOFT [Suspect]
     Dosage: 200 MG, TOTAL
     Route: 048
     Dates: start: 20131104, end: 20131104
  3. FLUOXETINE HYDROCHLORIDE [Suspect]
     Indication: SCHOOL REFUSAL
     Dosage: 80 MG, TOTAL
     Route: 048
     Dates: start: 20131104, end: 20131104
  4. BUSCOPAN [Suspect]
     Dosage: 30 MG, TOTAL
     Route: 048
     Dates: start: 20131104, end: 20131104

REACTIONS (3)
  - Drug abuse [Recovering/Resolving]
  - Toxicity to various agents [Recovering/Resolving]
  - Abdominal pain upper [Recovering/Resolving]
